FAERS Safety Report 18335360 (Version 1)
Quarter: 2020Q4

REPORT INFORMATION
  Report Type: Other
  Country: CA (occurrence: CA)
  Receive Date: 20201001
  Receipt Date: 20201001
  Transmission Date: 20210113
  Serious: Yes (Other)
  Sender: FDA-Public Use
  Company Number: CA-ROCHE-2662629

PATIENT
  Age: 66 Year
  Sex: Female

DRUGS (22)
  1. TOCILIZUMAB. [Suspect]
     Active Substance: TOCILIZUMAB
     Route: 042
     Dates: start: 20180815, end: 20180815
  2. TOCILIZUMAB. [Suspect]
     Active Substance: TOCILIZUMAB
     Route: 042
     Dates: start: 20130626, end: 20140917
  3. TOCILIZUMAB. [Suspect]
     Active Substance: TOCILIZUMAB
     Route: 042
     Dates: start: 20141029, end: 20150513
  4. TOCILIZUMAB. [Suspect]
     Active Substance: TOCILIZUMAB
     Dosage: NO PIRS RECEIVED BETWEEN 14/DEC/2016 TO 15/AUG/2018. DOSAGE NOTED ACCORDING TO PRESCRIPTION ENROLMEN
     Route: 042
     Dates: start: 20150610, end: 20170111
  5. CELEBREX [Concomitant]
     Active Substance: CELECOXIB
  6. INDAPAMIDE. [Concomitant]
     Active Substance: INDAPAMIDE
  7. TOCILIZUMAB. [Suspect]
     Active Substance: TOCILIZUMAB
     Indication: RHEUMATOID ARTHRITIS
     Dosage: CLINICAL TRIAL (OUTSIDE RPAP)
     Route: 042
     Dates: start: 2013
  8. AMLODIPINE [Concomitant]
     Active Substance: AMLODIPINE BESYLATE
  9. COVERSYL [Concomitant]
     Active Substance: PERINDOPRIL
  10. METHOTREXATE. [Concomitant]
     Active Substance: METHOTREXATE
  11. TOCILIZUMAB. [Suspect]
     Active Substance: TOCILIZUMAB
     Dosage: NO PIRS RECEIVED BETWEEN 14/DEC/2016 TO 15/AUG/2018. DOSAGE NOTED ACCORDING TO PRESCRIPTION ENROLMEN
     Route: 042
     Dates: start: 20180411, end: 20180606
  12. TOCILIZUMAB. [Suspect]
     Active Substance: TOCILIZUMAB
     Route: 042
     Dates: start: 20181219, end: 20191120
  13. ACETAMINOPHEN. [Concomitant]
     Active Substance: ACETAMINOPHEN
  14. PLAQUENIL [Concomitant]
     Active Substance: HYDROXYCHLOROQUINE SULFATE
  15. PREDNISONE. [Concomitant]
     Active Substance: PREDNISONE
  16. ROSUVASTATIN. [Concomitant]
     Active Substance: ROSUVASTATIN
  17. TOCILIZUMAB. [Suspect]
     Active Substance: TOCILIZUMAB
     Route: 042
     Dates: start: 20191218
  18. OXYCODONE [Concomitant]
     Active Substance: OXYCODONE
  19. TOCILIZUMAB. [Suspect]
     Active Substance: TOCILIZUMAB
     Dosage: NO PIRS RECEIVED BETWEEN 14/DEC/2016 TO 15/AUG/2018. DOSAGE NOTED ACCORDING TO PRESCRIPTION ENROLMEN
     Route: 042
     Dates: start: 20170208, end: 20180317
  20. TOCILIZUMAB. [Suspect]
     Active Substance: TOCILIZUMAB
     Route: 042
     Dates: start: 20180912, end: 20181107
  21. FOLIC ACID. [Concomitant]
     Active Substance: FOLIC ACID
  22. AMITRIPTYLINE [Concomitant]
     Active Substance: AMITRIPTYLINE
     Indication: ARTHRALGIA
     Dates: start: 20190701

REACTIONS (3)
  - Osteomyelitis [Recovering/Resolving]
  - Skeletal injury [Recovering/Resolving]
  - Fall [Unknown]

NARRATIVE: CASE EVENT DATE: 202008
